FAERS Safety Report 18243576 (Version 1)
Quarter: 2020Q3

REPORT INFORMATION
  Report Type: Spontaneous
  Country: US (occurrence: US)
  Receive Date: 20200908
  Receipt Date: 20200908
  Transmission Date: 20201103
  Serious: Yes (Hospitalization)
  Sender: FDA-Public Use
  Company Number: US-MYLANLABS-2020M1076992

PATIENT
  Age: 75 Year
  Sex: Male

DRUGS (6)
  1. PREDNISONE. [Suspect]
     Active Substance: PREDNISONE
     Indication: IMMUNOSUPPRESSANT DRUG THERAPY
     Route: 065
  2. CEFEPIME [Concomitant]
     Active Substance: CEFEPIME HYDROCHLORIDE
     Indication: MEDIASTINITIS
     Route: 065
  3. TACROLIMUS. [Suspect]
     Active Substance: TACROLIMUS
     Indication: IMMUNOSUPPRESSANT DRUG THERAPY
     Route: 065
  4. ACICLOVIR [Suspect]
     Active Substance: ACYCLOVIR
     Indication: VARICELLA ZOSTER VIRUS INFECTION
     Dosage: 10 MILLIGRAM/KILOGRAM, Q8H
     Route: 042
  5. MYCOPHENOLATE MOFETIL. [Suspect]
     Active Substance: MYCOPHENOLATE MOFETIL
     Indication: IMMUNOSUPPRESSANT DRUG THERAPY
     Route: 065
  6. ACICLOVIR [Suspect]
     Active Substance: ACYCLOVIR
     Dosage: 10 MILLIGRAM/KILOGRAM, QD
     Route: 042

REACTIONS (10)
  - Depressed level of consciousness [Recovering/Resolving]
  - Central nervous system infection [Recovering/Resolving]
  - Encephalopathy [Recovering/Resolving]
  - Varicella zoster virus infection [Not Recovered/Not Resolved]
  - Herpes zoster reactivation [Not Recovered/Not Resolved]
  - Guillain-Barre syndrome [Recovering/Resolving]
  - Muscular weakness [Recovering/Resolving]
  - Diplegia [Recovering/Resolving]
  - Multifocal motor neuropathy [Recovering/Resolving]
  - Sepsis [Not Recovered/Not Resolved]
